FAERS Safety Report 23154204 (Version 1)
Quarter: 2023Q4

REPORT INFORMATION
  Report Type: Spontaneous
  Country: ES (occurrence: ES)
  Receive Date: 20231107
  Receipt Date: 20231107
  Transmission Date: 20240109
  Serious: Yes (Other)
  Sender: FDA-Public Use
  Company Number: ES-AEMPS-1397774

PATIENT
  Sex: Male

DRUGS (2)
  1. SERTRALINE [Interacting]
     Active Substance: SERTRALINE HYDROCHLORIDE
     Indication: Dementia
     Dosage: 100 MILLIGRAM, BID
     Route: 048
     Dates: start: 20230303
  2. QUETIAPINE [Interacting]
     Active Substance: QUETIAPINE
     Indication: Agitation
     Dosage: UNK
     Route: 048
     Dates: start: 2023

REACTIONS (3)
  - Fall [Unknown]
  - Incorrect dosage administered [Unknown]
  - Sedation [Unknown]

NARRATIVE: CASE EVENT DATE: 20230503
